FAERS Safety Report 4341591-9 (Version None)
Quarter: 2004Q2

REPORT INFORMATION
  Report Type: 
  Country: None (occurrence: None)
  Receive Date: 20040419
  Receipt Date: 20040419
  Transmission Date: 20050107
  Serious: Yes (Other)
  Sender: FDA-Public Use
  Company Number: None

PATIENT
  Age: 43 Year
  Sex: Female
  Weight: 62.1428 kg

DRUGS (5)
  1. ZOLOFT [Suspect]
     Indication: ANXIETY
     Dosage: 50 1 TIME DAI ORAL
     Route: 048
  2. ZOLOFT [Suspect]
     Indication: DEPRESSION
     Dosage: 50 1 TIME DAI ORAL
     Route: 048
  3. ZOLOFT [Suspect]
     Indication: FATIGUE
     Dosage: 50 1 TIME DAI ORAL
     Route: 048
  4. ZOLOFT [Suspect]
     Indication: PALPITATIONS
     Dosage: 50 1 TIME DAI ORAL
     Route: 048
  5. ZOLOFT [Suspect]
     Indication: STRESS SYMPTOMS
     Dosage: 50 1 TIME DAI ORAL
     Route: 048

REACTIONS (27)
  - AGITATION [None]
  - ANOREXIA [None]
  - BRUXISM [None]
  - CHEST PAIN [None]
  - DEREALISATION [None]
  - DIARRHOEA [None]
  - DIZZINESS [None]
  - DRUG ADDICT [None]
  - DYSPNOEA [None]
  - FEAR [None]
  - FEELING ABNORMAL [None]
  - HEADACHE [None]
  - IMPAIRED WORK ABILITY [None]
  - INFLUENZA LIKE ILLNESS [None]
  - INSOMNIA [None]
  - MIGRAINE [None]
  - MUSCLE TIGHTNESS [None]
  - MYALGIA [None]
  - NECK PAIN [None]
  - NIGHTMARE [None]
  - PAIN [None]
  - PAIN IN JAW [None]
  - SENSATION OF PRESSURE IN EAR [None]
  - THINKING ABNORMAL [None]
  - THIRST [None]
  - TOOTHACHE [None]
  - WEIGHT DECREASED [None]
